FAERS Safety Report 6018632-6 (Version None)
Quarter: 2008Q4

REPORT INFORMATION
  Report Type: 
  Country: None (occurrence: None)
  Receive Date: 20081223
  Receipt Date: 20081201
  Transmission Date: 20090506
  Serious: Yes (Death)
  Sender: FDA-Public Use
  Company Number: JP-PFIZER INC-2008076341

PATIENT

DRUGS (10)
  1. SILDENAFIL CITRATE [Suspect]
     Indication: PULMONARY ARTERIAL HYPERTENSION
     Route: 048
     Dates: start: 20080503, end: 20080612
  2. MORPHINE HYDROCHLORIDE [Concomitant]
     Route: 042
     Dates: start: 20080503
  3. VECURONIUM BROMIDE [Concomitant]
     Route: 042
     Dates: start: 20080503
  4. INCREMIN [Concomitant]
     Route: 048
     Dates: start: 20080503
  5. LASIX [Concomitant]
     Route: 048
     Dates: start: 20080503
  6. ALDACTONE [Concomitant]
     Route: 048
     Dates: start: 20080503
  7. LEVOTHYROXINE SODIUM [Concomitant]
     Route: 048
     Dates: start: 20080503
  8. CLEANAL [Concomitant]
     Route: 048
     Dates: start: 20080503
  9. SOLU-CORTEF [Concomitant]
     Route: 042
     Dates: start: 20080513
  10. BOSMIN [Concomitant]
     Route: 042
     Dates: start: 20080612

REACTIONS (1)
  - RESPIRATORY FAILURE [None]
